FAERS Safety Report 6939291-1 (Version None)
Quarter: 2010Q3

REPORT INFORMATION
  Report Type: 
  Country: None (occurrence: None)
  Receive Date: 20100824
  Receipt Date: 20100728
  Transmission Date: 20110219
  Serious: No
  Sender: FDA-Public Use
  Company Number: US-MYLANLABS-2010S1013768

PATIENT
  Age: 66 Year
  Sex: Female

DRUGS (4)
  1. LEVETIRACETAM [Suspect]
     Indication: GRAND MAL CONVULSION
     Route: 048
     Dates: start: 20090301
  2. SYNTHROID [Concomitant]
  3. CLONIDINE [Concomitant]
  4. VERAPAMIL [Concomitant]

REACTIONS (2)
  - ALOPECIA [None]
  - VITAMIN D DEFICIENCY [None]
